FAERS Safety Report 9599449 (Version 1)
Quarter: 2013Q4

REPORT INFORMATION
  Report Type: Spontaneous
  Country: US (occurrence: US)
  Receive Date: 20131004
  Receipt Date: 20131004
  Transmission Date: 20140711
  Serious: No
  Sender: FDA-Public Use
  Company Number: US-AMGEN-USASP2013028986

PATIENT
  Age: 63 Year
  Sex: Male
  Weight: 99.77 kg

DRUGS (7)
  1. ENBREL [Suspect]
     Indication: PRODUCT USED FOR UNKNOWN INDICATION
     Dosage: 50 MG, QWK
     Route: 058
  2. PRAMIPEXOLE [Concomitant]
     Dosage: 1 MG, UNK
  3. CRESTOR [Concomitant]
     Dosage: 10 MG, UNK
  4. LEXAPRO [Concomitant]
     Dosage: 5 MG, UNK
  5. GLYBURIDE [Concomitant]
     Dosage: 2.5 MG, UNK
  6. METFORMIN [Concomitant]
     Dosage: 500 MG, UNK
  7. TRIFEREXX-150 [Concomitant]
     Dosage: UNK

REACTIONS (1)
  - Psoriasis [Unknown]
